FAERS Safety Report 5074784-6 (Version None)
Quarter: 2006Q3

REPORT INFORMATION
  Report Type: 
  Country: None (occurrence: None)
  Receive Date: 20060807
  Receipt Date: 20060801
  Transmission Date: 20061208
  Serious: Yes (Other)
  Sender: FDA-Public Use
  Company Number: 06-0091PO

PATIENT
  Age: 18 Month
  Sex: Male

DRUGS (2)
  1. PONSTEL [Suspect]
     Indication: POST PROCEDURAL COMPLICATION
     Dosage: PO
     Route: 048
     Dates: start: 20060723, end: 20060723
  2. PONSTEL [Suspect]
     Indication: PYREXIA
     Dosage: PO
     Route: 048
     Dates: start: 20060723, end: 20060723

REACTIONS (2)
  - INCORRECT DOSE ADMINISTERED [None]
  - TREATMENT NONCOMPLIANCE [None]
